FAERS Safety Report 8231364 (Version 2)
Quarter: 2012Q4

REPORT INFORMATION
  Report Type: 
  Country: US (occurrence: US)
  Receive Date: 20111106
  Receipt Date: 20121107
  Transmission Date: 20130627
  Serious: No
  Sender: FDA-Public Use
  Company Number: US-AMGEN-USASP2011044964

PATIENT
  Age: 35 Year
  Sex: Male

DRUGS (2)
  1. ENBREL [Suspect]
     Indication: RHEUMATOID ARTHRITIS
     Dosage: 50 mg, qwk
     Dates: start: 20070829
  2. ENBREL [Suspect]
     Dosage: UNK

REACTIONS (7)
  - Hernia [Recovered/Resolved]
  - Ingrown hair [Recovered/Resolved]
  - Arthralgia [Recovered/Resolved]
  - Cyst [Not Recovered/Not Resolved]
  - Pain in extremity [Recovered/Resolved]
  - Joint stiffness [Recovered/Resolved]
  - Infection [Unknown]
